FAERS Safety Report 23929414 (Version 1)
Quarter: 2024Q2

REPORT INFORMATION
  Report Type: Spontaneous
  Country: US (occurrence: US)
  Receive Date: 20240601
  Receipt Date: 20240601
  Transmission Date: 20240716
  Serious: No
  Sender: FDA-Public Use
  Company Number: US-RADIUS HEALTH INC.-2024US002320

PATIENT
  Age: 73 Year
  Sex: Male

DRUGS (1)
  1. TYMLOS [Suspect]
     Active Substance: ABALOPARATIDE
     Indication: Compression fracture
     Dosage: UNK
     Route: 058
     Dates: start: 202306, end: 202312

REACTIONS (4)
  - Blood alkaline phosphatase increased [Recovered/Resolved]
  - Procollagen type I C-terminal propeptide increased [Recovered/Resolved]
  - C-telopeptide increased [Unknown]
  - Off label use [Recovered/Resolved]

NARRATIVE: CASE EVENT DATE: 20230601
